FAERS Safety Report 21615111 (Version 1)
Quarter: 2022Q4

REPORT INFORMATION
  Report Type: Spontaneous
  Country: AR (occurrence: AR)
  Receive Date: 20221118
  Receipt Date: 20221118
  Transmission Date: 20230113
  Serious: Yes (Other)
  Sender: FDA-Public Use
  Company Number: AR-PFIZER INC-PV202200105808

PATIENT
  Age: 81 Year
  Sex: Female

DRUGS (1)
  1. SUTENT [Suspect]
     Active Substance: SUNITINIB MALATE
     Indication: Renal cancer
     Dosage: 37.5 MG, CYCLIC (45 DAYS 4/2 SCHEME)
     Dates: start: 20210603

REACTIONS (2)
  - Limb operation [Not Recovered/Not Resolved]
  - Wound haemorrhage [Not Recovered/Not Resolved]
